FAERS Safety Report 9996773 (Version 1)
Quarter: 2014Q1

REPORT INFORMATION
  Report Type: Spontaneous
  Country: US (occurrence: US)
  Receive Date: 20140311
  Receipt Date: 20140311
  Transmission Date: 20141002
  Serious: No
  Sender: FDA-Public Use
  Company Number: US-GLAXOSMITHKLINE-A1025499A

PATIENT
  Age: 52 Year
  Sex: Male

DRUGS (1)
  1. NICORETTE CINNAMON SURGE OTC 4MG [Suspect]
     Indication: TOBACCO ABUSE
     Dates: start: 20130602

REACTIONS (5)
  - Nausea [Recovered/Resolved]
  - Drug administration error [Unknown]
  - Dysgeusia [Recovered/Resolved]
  - Abdominal pain upper [Recovered/Resolved]
  - Malaise [Recovered/Resolved]
